FAERS Safety Report 20771442 (Version 1)
Quarter: 2022Q2

REPORT INFORMATION
  Report Type: Other
  Country: TW (occurrence: None)
  Receive Date: 20220429
  Receipt Date: 20220429
  Transmission Date: 20220721
  Serious: Yes (Other)
  Sender: FDA-Public Use
  Company Number: TW-ROCHE-3087479

PATIENT
  Age: 61 Year
  Sex: Male
  Weight: 64 kg

DRUGS (15)
  1. TOCILIZUMAB [Suspect]
     Active Substance: TOCILIZUMAB
     Indication: COVID-19 pneumonia
     Dosage: SECOND TOCILIZUMAB DOSE: 3.1 MG/KG?TOTAL CUMULATIVE TOCILIZUMAB DOSE: 9.38 MG/KG
     Route: 065
  2. TOCILIZUMAB [Suspect]
     Active Substance: TOCILIZUMAB
     Indication: Acute respiratory distress syndrome
  3. TOCILIZUMAB [Suspect]
     Active Substance: TOCILIZUMAB
     Indication: Cytokine release syndrome
  4. DEXAMETHASONE [Concomitant]
     Active Substance: DEXAMETHASONE
     Indication: COVID-19 pneumonia
     Dosage: 10 DAYS COURSE
  5. DEXAMETHASONE [Concomitant]
     Active Substance: DEXAMETHASONE
     Indication: Acute respiratory distress syndrome
  6. REMDESIVIR [Concomitant]
     Active Substance: REMDESIVIR
     Indication: COVID-19 pneumonia
  7. CISATRACURIUM [Concomitant]
     Active Substance: CISATRACURIUM
     Indication: Muscle relaxant therapy
  8. CEFTAROLINE [Concomitant]
     Active Substance: CEFTAROLINE
     Indication: COVID-19 pneumonia
     Route: 042
  9. AZITHROMYCIN [Concomitant]
     Active Substance: AZITHROMYCIN
     Indication: COVID-19 pneumonia
     Route: 048
  10. CEFOPERAZONE\SULBACTAM [Concomitant]
     Active Substance: CEFOPERAZONE\SULBACTAM
     Indication: COVID-19 pneumonia
  11. LEVOFLOXACIN [Concomitant]
     Active Substance: LEVOFLOXACIN
     Indication: Nosocomial infection
  12. FUROSEMIDE [Concomitant]
     Active Substance: FUROSEMIDE
     Indication: COVID-19 pneumonia
     Route: 042
  13. MEROPENEM [Concomitant]
     Active Substance: MEROPENEM
     Indication: COVID-19 pneumonia
  14. LINEZOLID [Concomitant]
     Active Substance: LINEZOLID
     Indication: COVID-19 pneumonia
  15. COLISTIN [Concomitant]
     Active Substance: COLISTIN
     Indication: COVID-19 pneumonia

REACTIONS (2)
  - Bronchopulmonary aspergillosis [Unknown]
  - Off label use [Unknown]
